FAERS Safety Report 9515642 (Version 1)
Quarter: 2013Q3

REPORT INFORMATION
  Report Type: Spontaneous
  Country: US (occurrence: US)
  Receive Date: 20130911
  Receipt Date: 20130911
  Transmission Date: 20140515
  Serious: Yes (Hospitalization)
  Sender: FDA-Public Use
  Company Number: US-BAYER-2013-107109

PATIENT
  Age: 38 Year
  Sex: Female

DRUGS (7)
  1. YAZ [Suspect]
     Indication: MOOD ALTERED
  2. BUSPAR [Concomitant]
     Dosage: UNK
     Dates: start: 20100910
  3. VITAMIN D [Concomitant]
     Dosage: UNK
     Dates: start: 20100910
  4. LITHIUM [Concomitant]
     Dosage: UNK
     Dates: start: 20100910
  5. TRAMADOL [Concomitant]
     Dosage: UNK
     Dates: start: 20100910
  6. LYRICA [Concomitant]
     Dosage: UNK
     Dates: start: 20100910
  7. ZOLOFT [Concomitant]
     Dosage: UNK
     Dates: start: 20100910

REACTIONS (2)
  - Pulmonary embolism [None]
  - Thrombophlebitis superficial [None]
